FAERS Safety Report 4599251-5 (Version None)
Quarter: 2005Q1

REPORT INFORMATION
  Report Type: 
  Country: None (occurrence: None)
  Receive Date: 20050302
  Receipt Date: 20050302
  Transmission Date: 20050727
  Serious: No
  Sender: FDA-Public Use
  Company Number: None

PATIENT
  Age: 54 Year
  Sex: Female

DRUGS (4)
  1. ALBUTEROL MDI INHALER 17G [Suspect]
     Indication: ASTHMA
     Dosage: TWO PUFF EVERY SIX HOURS
  2. FLORINAL [Concomitant]
  3. ZYRTEC [Concomitant]
  4. PREMARIN [Concomitant]

REACTIONS (2)
  - DRUG INEFFECTIVE [None]
  - PHARMACEUTICAL PRODUCT COMPLAINT [None]
